FAERS Safety Report 26126133 (Version 1)
Quarter: 2025Q4

REPORT INFORMATION
  Report Type: Report from Study
  Country: IN (occurrence: IN)
  Receive Date: 20251205
  Receipt Date: 20251205
  Transmission Date: 20260118
  Serious: Yes (Other)
  Sender: ROCHE
  Company Number: IN-ROCHE-10000444985

PATIENT
  Age: 64 Year
  Sex: Male
  Weight: 62 kg

DRUGS (1)
  1. TECENTRIQ [Suspect]
     Active Substance: ATEZOLIZUMAB
     Indication: Hepatocellular carcinoma
     Route: 042
     Dates: start: 20250924

REACTIONS (7)
  - Varices oesophageal [Unknown]
  - Gastric ulcer [Unknown]
  - Liver disorder [Unknown]
  - Ascites [Unknown]
  - Guillain-Barre syndrome [Unknown]
  - Essential hypertension [Unknown]
  - Type 2 diabetes mellitus [Unknown]
